FAERS Safety Report 9832744 (Version 1)
Quarter: 2014Q1

REPORT INFORMATION
  Report Type: Spontaneous
  Country: US (occurrence: US)
  Receive Date: 20140121
  Receipt Date: 20140121
  Transmission Date: 20141002
  Serious: Yes (Life-Threatening, Other)
  Sender: FDA-Public Use
  Company Number: US-CELGENEUS-163-21880-14012181

PATIENT
  Sex: Female

DRUGS (1)
  1. REVLIMID [Suspect]
     Indication: PLASMA CELL MYELOMA
     Dosage: 5 MILLIGRAM
     Route: 048
     Dates: start: 201309

REACTIONS (1)
  - Clostridium difficile infection [Unknown]
